FAERS Safety Report 12967647 (Version 2)
Quarter: 2016Q4

REPORT INFORMATION
  Report Type: Report from Study
  Country: US (occurrence: US)
  Receive Date: 20161123
  Receipt Date: 20161222
  Transmission Date: 20170207
  Serious: Yes (Death, Hospitalization, Other)
  Sender: FDA-Public Use
  Company Number: US-009507513-1611USA009043

PATIENT
  Age: 62 Year
  Sex: Female

DRUGS (2)
  1. NOXAFIL [Suspect]
     Active Substance: POSACONAZOLE
     Dosage: THREE TABLETS, TWICE A DAY, FOR THREE DAYS
     Route: 048
     Dates: start: 20151130, end: 20151202
  2. NOXAFIL [Suspect]
     Active Substance: POSACONAZOLE
     Dosage: THREE TABLETS ONCE A DAY
     Route: 048
     Dates: start: 20151203

REACTIONS (3)
  - Product use issue [Unknown]
  - Death [Fatal]
  - Adverse event [Unknown]

NARRATIVE: CASE EVENT DATE: 20151201
